FAERS Safety Report 21320869 (Version 1)
Quarter: 2022Q3

REPORT INFORMATION
  Report Type: Report from Study
  Country: US (occurrence: US)
  Receive Date: 20220912
  Receipt Date: 20220912
  Transmission Date: 20221026
  Serious: Yes (Hospitalization)
  Sender: FDA-Public Use
  Company Number: US-NOVARTISPH-NVSC2022US202086

PATIENT
  Sex: Female

DRUGS (3)
  1. ENTRESTO [Suspect]
     Active Substance: SACUBITRIL\VALSARTAN
     Indication: Product used for unknown indication
     Dosage: 24/26 MG, BID
     Route: 048
     Dates: start: 202205
  2. ENTRESTO [Suspect]
     Active Substance: SACUBITRIL\VALSARTAN
     Dosage: 49/51 MG (INCREASED DOSE)
     Route: 048
     Dates: start: 202207
  3. ENTRESTO [Suspect]
     Active Substance: SACUBITRIL\VALSARTAN
     Dosage: 24/26 MG, BID
     Route: 048

REACTIONS (5)
  - Seizure [Unknown]
  - Blood sodium decreased [Unknown]
  - Hypotension [Unknown]
  - Syncope [Unknown]
  - Cough [Not Recovered/Not Resolved]
